FAERS Safety Report 17373716 (Version 9)
Quarter: 2020Q4

REPORT INFORMATION
  Report Type: Report from Study
  Country: US (occurrence: US)
  Receive Date: 20200205
  Receipt Date: 20201112
  Transmission Date: 20210113
  Serious: Yes (Other)
  Sender: FDA-Public Use
  Company Number: NVSC2019US043455

PATIENT
  Sex: Male

DRUGS (5)
  1. BEOVU [Suspect]
     Active Substance: BROLUCIZUMAB-DBLL
     Dosage: UNK UNK, QMO (RIGHT EYE)
     Route: 047
  2. BEOVU [Suspect]
     Active Substance: BROLUCIZUMAB-DBLL
     Indication: NEOVASCULAR AGE-RELATED MACULAR DEGENERATION
     Dosage: UNK UNK, QMO
     Route: 047
  3. BEOVU [Suspect]
     Active Substance: BROLUCIZUMAB-DBLL
     Dosage: UNK
     Route: 047
     Dates: start: 20200218
  4. BEOVU [Suspect]
     Active Substance: BROLUCIZUMAB-DBLL
     Dosage: UNK UNK, QMO (ONE EYE)
     Route: 047
     Dates: start: 20191106
  5. BEOVU [Suspect]
     Active Substance: BROLUCIZUMAB-DBLL
     Dosage: UNK UNK, QMO
     Route: 047
     Dates: start: 20200219

REACTIONS (14)
  - Cough [Unknown]
  - Eye irritation [Unknown]
  - Vitreous floaters [Unknown]
  - Ocular discomfort [Unknown]
  - Neovascular age-related macular degeneration [Not Recovered/Not Resolved]
  - Subretinal fluid [Not Recovered/Not Resolved]
  - Memory impairment [Unknown]
  - Intra-ocular injection complication [Recovered/Resolved]
  - Cataract [Not Recovered/Not Resolved]
  - Sinus disorder [Unknown]
  - Vision blurred [Not Recovered/Not Resolved]
  - Therapeutic response shortened [Not Recovered/Not Resolved]
  - Asthenopia [Unknown]
  - Visual acuity reduced [Not Recovered/Not Resolved]
